FAERS Safety Report 20611702 (Version 1)
Quarter: 2022Q1

REPORT INFORMATION
  Report Type: Spontaneous
  Country: FR (occurrence: FR)
  Receive Date: 20220318
  Receipt Date: 20220318
  Transmission Date: 20220423
  Serious: Yes (Other)
  Sender: FDA-Public Use
  Company Number: None

PATIENT
  Age: 44 Year
  Sex: Female
  Weight: 65 kg

DRUGS (4)
  1. PACLITAXEL [Suspect]
     Active Substance: PACLITAXEL
     Indication: Breast cancer
     Dosage: 150MG
     Route: 042
     Dates: end: 20220216
  2. SOLU-MEDROL [Concomitant]
     Active Substance: METHYLPREDNISOLONE SODIUM SUCCINATE
     Dosage: 80MG
     Route: 042
     Dates: end: 20220216
  3. POLARAMINE [Concomitant]
     Active Substance: DEXCHLORPHENIRAMINE MALEATE
     Dosage: 5MG,POLARAMINE 5 MG/1 ML, SOLUTION FOR INJECTION
     Route: 042
     Dates: end: 20220216
  4. RANITIDINE [Concomitant]
     Active Substance: RANITIDINE
     Dosage: RANITIDINE BASE
     Route: 042
     Dates: start: 20220216, end: 20220216

REACTIONS (1)
  - Infusion related reaction [Recovered/Resolved]

NARRATIVE: CASE EVENT DATE: 20220216
